FAERS Safety Report 17526422 (Version 2)
Quarter: 2020Q2

REPORT INFORMATION
  Report Type: Spontaneous
  Country: US (occurrence: US)
  Receive Date: 20200310
  Receipt Date: 20200605
  Transmission Date: 20200713
  Serious: Yes (Other)
  Sender: FDA-Public Use
  Company Number: US-ACTELION-A-US2020-202923

PATIENT
  Sex: Male
  Weight: 67.12 kg

DRUGS (3)
  1. ADEMPAS [Concomitant]
     Active Substance: RIOCIGUAT
  2. UPTRAVI [Suspect]
     Active Substance: SELEXIPAG
     Indication: PULMONARY HYPERTENSION
     Dosage: 1600 MCG, BID
     Route: 048
  3. UPTRAVI [Suspect]
     Active Substance: SELEXIPAG
     Dosage: 800 MCG
     Route: 048

REACTIONS (11)
  - Fibrosis [Unknown]
  - Head discomfort [Unknown]
  - Pain in extremity [Unknown]
  - Pain in jaw [Unknown]
  - Myalgia [Unknown]
  - Hypotension [Unknown]
  - Hepatic cirrhosis [Unknown]
  - Dizziness [Unknown]
  - Palpitations [Recovered/Resolved]
  - Chest discomfort [Unknown]
  - Incorrect dose administered [Unknown]
